FAERS Safety Report 7551332-X (Version None)
Quarter: 2011Q2

REPORT INFORMATION
  Report Type: 
  Country: None (occurrence: None)
  Receive Date: 20110616
  Receipt Date: 20110531
  Transmission Date: 20111010
  Serious: Yes (Life-Threatening, Hospitalization, Other)
  Sender: FDA-Public Use
  Company Number: US-BAYER-201029756NA

PATIENT
  Age: 30 Year
  Sex: Female
  Weight: 92.517 kg

DRUGS (11)
  1. DROSPIRENONE AND ETHINYL ESTRADIOL [Suspect]
     Indication: CONTRACEPTION
     Dosage: UNK
     Route: 048
     Dates: start: 20080101, end: 20090101
  2. PHENERGAN HCL [Concomitant]
  3. YASMIN [Suspect]
     Indication: CONTRACEPTION
     Dosage: UNK
     Route: 048
     Dates: start: 20040101, end: 20060101
  4. ALLEGRA [Concomitant]
     Indication: URTICARIA
     Dosage: 180 MG, QD
     Route: 048
  5. PREVACID [Concomitant]
  6. PROTONIX [Concomitant]
  7. LORTAB [Concomitant]
  8. LEVAQUIN [Concomitant]
     Indication: URINARY TRACT INFECTION
     Dosage: 500 MG, QD
     Route: 048
  9. REGLAN [Concomitant]
  10. GASTROINTESTINAL COCKTAIL [Concomitant]
  11. PEPCID [Concomitant]

REACTIONS (7)
  - HEPATITIS [None]
  - LIVER INJURY [None]
  - ORGAN FAILURE [None]
  - CHOLECYSTITIS CHRONIC [None]
  - INJURY [None]
  - CHOLANGITIS [None]
  - GALLBLADDER NON-FUNCTIONING [None]
